FAERS Safety Report 5164084-8 (Version None)
Quarter: 2006Q4

REPORT INFORMATION
  Report Type: 
  Country: None (occurrence: None)
  Receive Date: 20061124
  Receipt Date: 20061109
  Transmission Date: 20070319
  Serious: Yes (Death, Hospitalization, Other)
  Sender: FDA-Public Use
  Company Number: 2006139911

PATIENT
  Age: 24 Year
  Sex: Male

DRUGS (3)
  1. SERTRALINE [Suspect]
  2. LITHIUM CARBONATE [Suspect]
  3. METHAMPHETAMINE (METHAMPHETAMINE) [Suspect]

REACTIONS (8)
  - CARDIAC ARREST [None]
  - CARDIAC HYPERTROPHY [None]
  - CONVULSION [None]
  - LETHARGY [None]
  - OVERDOSE [None]
  - RESPIRATORY ARREST [None]
  - SEROTONIN SYNDROME [None]
  - SHOCK [None]
